FAERS Safety Report 13347577 (Version 1)
Quarter: 2017Q1

REPORT INFORMATION
  Report Type: Not Available
  Country: US (occurrence: US)
  Receive Date: 20170317
  Receipt Date: 20170317
  Transmission Date: 20170428
  Serious: No
  Sender: FDA-Public Use
  Company Number: US-CIPHERPHARMA-2016-US-009745

PATIENT
  Sex: Female

DRUGS (1)
  1. SITAVIG [Suspect]
     Active Substance: ACYCLOVIR
     Dosage: 1 TABLET ONCE
     Route: 050
     Dates: start: 20161130

REACTIONS (2)
  - Gingival pain [Not Recovered/Not Resolved]
  - Gingival ulceration [Not Recovered/Not Resolved]

NARRATIVE: CASE EVENT DATE: 20161201
